FAERS Safety Report 25823831 (Version 1)
Quarter: 2025Q3

REPORT INFORMATION
  Report Type: Spontaneous
  Country: GB (occurrence: GB)
  Receive Date: 20250919
  Receipt Date: 20250919
  Transmission Date: 20251020
  Serious: Yes (Disabling, Other)
  Sender: TEVA
  Company Number: None

PATIENT
  Age: 47 Year
  Sex: Female
  Weight: 82 kg

DRUGS (1)
  1. LETROZOLE [Suspect]
     Active Substance: LETROZOLE
     Indication: Breast cancer stage I
     Dosage: EVERY NIGHT
     Route: 065
     Dates: start: 20250723, end: 20250912

REACTIONS (4)
  - Tinnitus [Not Recovered/Not Resolved]
  - Arthralgia [Recovering/Resolving]
  - Dyspepsia [Not Recovered/Not Resolved]
  - Weight increased [Not Recovered/Not Resolved]

NARRATIVE: CASE EVENT DATE: 20250811
